FAERS Safety Report 21172336 (Version 2)
Quarter: 2023Q2

REPORT INFORMATION
  Report Type: Spontaneous
  Country: FR (occurrence: FR)
  Receive Date: 20220804
  Receipt Date: 20230428
  Transmission Date: 20230722
  Serious: Yes (Death, Hospitalization)
  Sender: FDA-Public Use
  Company Number: None

PATIENT
  Age: 72 Year
  Sex: Male
  Weight: 60 kg

DRUGS (2)
  1. ERIVEDGE [Suspect]
     Active Substance: VISMODEGIB
     Indication: Basal cell carcinoma
     Route: 065
     Dates: start: 20210428, end: 20220621
  2. SONIDEGIB PHOSPHATE [Suspect]
     Active Substance: SONIDEGIB PHOSPHATE
     Indication: Basal cell carcinoma
     Route: 065
     Dates: start: 20220622, end: 20220718

REACTIONS (2)
  - Duodenal ulcer perforation [Fatal]
  - Pancreatitis acute [Recovered/Resolved]

NARRATIVE: CASE EVENT DATE: 20220701
